FAERS Safety Report 16758046 (Version 4)
Quarter: 2022Q3

REPORT INFORMATION
  Report Type: Report from Study
  Country: CZ (occurrence: CZ)
  Receive Date: 20190830
  Receipt Date: 20220921
  Transmission Date: 20221026
  Serious: Yes (Other)
  Sender: FDA-Public Use
  Company Number: CZ-TEVA-2019-CZ-1099297

PATIENT
  Age: 43 Year
  Sex: Female

DRUGS (4)
  1. COPAXONE [Suspect]
     Active Substance: GLATIRAMER ACETATE
     Indication: Clinically isolated syndrome
     Route: 058
     Dates: start: 20190812, end: 20190821
  2. ORFIRIL LONG 300 MG TWICE DAILY (VALPROATE) [Concomitant]
     Indication: Product used for unknown indication
  3. LETROX 50 ONCE DAILY (LEVOTHYROXINE) [Concomitant]
     Indication: Product used for unknown indication
     Dosage: 50 MILLIGRAM DAILY;
  4. VIGANTOL 4 DROPS DAILY (CHOLEKALCIFEROL) [Concomitant]
     Indication: Product used for unknown indication
     Dosage: 4 DROPS DAILY

REACTIONS (11)
  - Injection site reaction [Recovered/Resolved]
  - Chills [Recovered/Resolved]
  - Palpitations [Recovered/Resolved]
  - Nausea [Recovered/Resolved]
  - Pyrexia [Recovered/Resolved]
  - Thirst [Recovered/Resolved]
  - Vomiting [Recovered/Resolved]
  - Fear [Recovered/Resolved]
  - Chest discomfort [Recovered/Resolved]
  - Injection site erythema [Recovered/Resolved]
  - Emotional distress [Recovered/Resolved]

NARRATIVE: CASE EVENT DATE: 20190818
